FAERS Safety Report 5079670-3 (Version None)
Quarter: 2006Q3

REPORT INFORMATION
  Report Type: 
  Country: None (occurrence: None)
  Receive Date: 20060808
  Receipt Date: 20060724
  Transmission Date: 20061208
  Serious: Yes (Hospitalization, Other)
  Sender: FDA-Public Use
  Company Number: US200601002891

PATIENT
  Age: 44 Year
  Sex: Male

DRUGS (13)
  1. HUMATROPE [Suspect]
     Indication: BONE DENSITY DECREASED
     Dosage: 0.6 MG, DAILY (1/D), SUBCUTANEOUS
     Route: 058
     Dates: start: 20030101
  2. COGENTIN [Concomitant]
  3. ANDROGEL [Concomitant]
  4. SYNTHROID [Concomitant]
  5. CORTEF [Concomitant]
  6. PROTONIX [Concomitant]
  7. AVANDIA [Concomitant]
  8. HALDOL [Concomitant]
  9. CLOZARIL [Concomitant]
  10. DEPAKOTE [Concomitant]
  11. FLORINEF [Concomitant]
  12. DDAVP [Concomitant]
  13. COLACE (DOCUSATE SODIUM) [Concomitant]

REACTIONS (17)
  - ANKLE FRACTURE [None]
  - CONTUSION [None]
  - DEPRESSION [None]
  - DYSSTASIA [None]
  - EYE INJURY [None]
  - FACE INJURY [None]
  - FALL [None]
  - FOOT FRACTURE [None]
  - HAND FRACTURE [None]
  - HEAD INJURY [None]
  - JOINT INJURY [None]
  - MINERAL DEFICIENCY [None]
  - OBSESSIVE-COMPULSIVE DISORDER [None]
  - ORTHOSTATIC HYPOTENSION [None]
  - PARANOIA [None]
  - PHARMACEUTICAL PRODUCT COMPLAINT [None]
  - WRIST FRACTURE [None]
